FAERS Safety Report 4414145-3 (Version None)
Quarter: 2004Q3

REPORT INFORMATION
  Report Type: 
  Country: None (occurrence: None)
  Receive Date: 20040728
  Receipt Date: 20040723
  Transmission Date: 20050211
  Serious: Yes (Hospitalization)
  Sender: FDA-Public Use
  Company Number: 200412304GDS

PATIENT
  Age: 53 Year
  Sex: Male

DRUGS (2)
  1. ASPIRIN [Suspect]
  2. HEPARIN [Suspect]

REACTIONS (5)
  - BACK PAIN [None]
  - CONTUSION [None]
  - HAEMOGLOBIN DECREASED [None]
  - PARAESTHESIA [None]
  - RETROPERITONEAL HAEMORRHAGE [None]
